FAERS Safety Report 18310161 (Version 2)
Quarter: 2020Q4

REPORT INFORMATION
  Report Type: Spontaneous
  Country: US (occurrence: US)
  Receive Date: 20200924
  Receipt Date: 20201008
  Transmission Date: 20210113
  Serious: No
  Sender: FDA-Public Use
  Company Number: US-ASTRAZENECA-2019SF63597

PATIENT
  Sex: Male

DRUGS (2)
  1. OXYCODONE [Concomitant]
     Active Substance: OXYCODONE
     Indication: BACK PAIN
  2. MOVANTIK [Suspect]
     Active Substance: NALOXEGOL OXALATE
     Dosage: 25.0MG UNKNOWN
     Route: 048
     Dates: start: 20150707

REACTIONS (1)
  - Drug ineffective [Unknown]

NARRATIVE: CASE EVENT DATE: 20191012
